FAERS Safety Report 11342138 (Version 1)
Quarter: 2015Q3

REPORT INFORMATION
  Report Type: Report from Study
  Country: IT (occurrence: IT)
  Receive Date: 20150805
  Receipt Date: 20150805
  Transmission Date: 20151125
  Serious: Yes (Other)
  Sender: FDA-Public Use
  Company Number: IT-UCBSA-2015024521

PATIENT
  Sex: Female

DRUGS (2)
  1. LEVETIRACETAM. [Suspect]
     Active Substance: LEVETIRACETAM
     Indication: EPILEPSY
     Dosage: DAILY DOSE OF 2500 (UNITS UNSPECIFIED) MONOTHERAPY
  2. LEVETIRACETAM. [Suspect]
     Active Substance: LEVETIRACETAM
     Dosage: DOSE ADJUSTMENTS

REACTIONS (2)
  - Stillbirth [Unknown]
  - Pregnancy [Unknown]
